FAERS Safety Report 23308636 (Version 1)
Quarter: 2023Q4

REPORT INFORMATION
  Report Type: Report from Study
  Country: MX (occurrence: MX)
  Receive Date: 20231218
  Receipt Date: 20231218
  Transmission Date: 20240110
  Serious: Yes (Other)
  Sender: FDA-Public Use
  Company Number: MX-TAKEDA-2023TUS120143

PATIENT
  Sex: Female

DRUGS (1)
  1. VEDOLIZUMAB [Suspect]
     Active Substance: VEDOLIZUMAB
     Indication: Colitis ulcerative
     Dosage: 300 MILLIGRAM
     Route: 042
     Dates: start: 20220323

REACTIONS (5)
  - Haematochezia [Unknown]
  - Anxiety disorder [Unknown]
  - Personality disorder [Unknown]
  - Panic disorder [Unknown]
  - Drug effect less than expected [Unknown]
